FAERS Safety Report 26157268 (Version 1)
Quarter: 2025Q4

REPORT INFORMATION
  Report Type: Spontaneous
  Country: JP (occurrence: JP)
  Receive Date: 20251215
  Receipt Date: 20251215
  Transmission Date: 20260117
  Serious: Yes (Hospitalization)
  Sender: FERRING
  Company Number: JP-FERRINGPH-2025FE05759

PATIENT

DRUGS (2)
  1. DEGARELIX [Suspect]
     Active Substance: DEGARELIX
     Indication: Prostate cancer
     Dosage: 80 MG, MONTHLY
     Route: 058
     Dates: start: 20250710
  2. ZYTIGA [Concomitant]
     Active Substance: ABIRATERONE ACETATE
     Route: 048

REACTIONS (3)
  - Cardiac failure [Unknown]
  - Dizziness [Unknown]
  - Coronavirus infection [Unknown]

NARRATIVE: CASE EVENT DATE: 20250801
